FAERS Safety Report 26043639 (Version 2)
Quarter: 2025Q4

REPORT INFORMATION
  Report Type: Report from Study
  Country: CO (occurrence: CO)
  Receive Date: 20251113
  Receipt Date: 20251125
  Transmission Date: 20260118
  Serious: Yes (Hospitalization)
  Sender: ABBVIE
  Company Number: CO-ABBVIE-6542283

PATIENT
  Age: 54 Year
  Sex: Male
  Weight: 103 kg

DRUGS (4)
  1. SKYRIZI [Suspect]
     Active Substance: RISANKIZUMAB-RZAA
     Indication: Psoriasis
     Dosage: 150 MG
     Route: 058
     Dates: start: 20211008, end: 20250626
  2. LOSARTAN [Concomitant]
     Active Substance: LOSARTAN
     Indication: Hypertension
     Dosage: FIRST ADMIN DATE-BEFORE SKYRIZI
     Route: 048
  3. SPIRONOLACTONE [Concomitant]
     Active Substance: SPIRONOLACTONE
     Indication: Hypertension
     Route: 048
  4. AMLODIPINE [Concomitant]
     Active Substance: AMLODIPINE BESYLATE
     Indication: Hypertension
     Dosage: FIRST ADMIN DATE-BEFORE SKYRIZI
     Route: 048

REACTIONS (8)
  - Nephrolithiasis [Not Recovered/Not Resolved]
  - Urethral injury [Unknown]
  - Urinary retention [Recovering/Resolving]
  - Urinary tract infection [Unknown]
  - Calculus urethral [Unknown]
  - Weight decreased [Recovering/Resolving]
  - Blood triglycerides increased [Unknown]
  - Blood cholesterol increased [Unknown]

NARRATIVE: CASE EVENT DATE: 20250101
